FAERS Safety Report 16415362 (Version 1)
Quarter: 2019Q2

REPORT INFORMATION
  Report Type: Spontaneous
  Country: US (occurrence: US)
  Receive Date: 20190610
  Receipt Date: 20190610
  Transmission Date: 20190711
  Serious: Yes (Hospitalization)
  Sender: FDA-Public Use
  Company Number: None

PATIENT
  Age: 49 Year
  Sex: Male
  Weight: 76.5 kg

DRUGS (6)
  1. DEPO-MEDROL [Suspect]
     Active Substance: METHYLPREDNISOLONE ACETATE
     Dates: start: 20190514, end: 20190514
  2. DIAZEPAM. [Concomitant]
     Active Substance: DIAZEPAM
  3. IBUPROFEN. [Concomitant]
     Active Substance: IBUPROFEN
  4. TYLENOL [Concomitant]
     Active Substance: ACETAMINOPHEN
  5. LIDOCAINE 1% [Suspect]
     Active Substance: LIDOCAINE
     Indication: BACK PAIN
     Dates: start: 20190514, end: 20190514
  6. BUPIVACAINE 0.25% [Suspect]
     Active Substance: BUPIVACAINE
     Dates: start: 20190514, end: 20190514

REACTIONS (14)
  - Pain in extremity [None]
  - Vulvovaginal pain [None]
  - Muscular weakness [None]
  - Palpitations [None]
  - Loss of libido [None]
  - Injection site pain [None]
  - Pollakiuria [None]
  - Muscle spasms [None]
  - Muscle twitching [None]
  - Pyrexia [None]
  - Musculoskeletal stiffness [None]
  - Blood pressure increased [None]
  - Headache [None]
  - Feeling abnormal [None]

NARRATIVE: CASE EVENT DATE: 20190514
